FAERS Safety Report 5966123-0 (Version None)
Quarter: 2008Q4

REPORT INFORMATION
  Report Type: 
  Country: None (occurrence: None)
  Receive Date: 20081125
  Receipt Date: 20081111
  Transmission Date: 20090506
  Serious: Yes (Hospitalization)
  Sender: FDA-Public Use
  Company Number: US-JNJFOC-20080706862

PATIENT
  Sex: Female
  Weight: 85.73 kg

DRUGS (2)
  1. DURAGESIC-100 [Suspect]
     Route: 062
  2. DURAGESIC-100 [Suspect]
     Indication: INTERVERTEBRAL DISC DEGENERATION
     Route: 062

REACTIONS (3)
  - APPLICATION SITE REACTION [None]
  - DERMATITIS [None]
  - WRONG TECHNIQUE IN DRUG USAGE PROCESS [None]
